FAERS Safety Report 8001398-8 (Version None)
Quarter: 2011Q4

REPORT INFORMATION
  Report Type: 
  Country: None (occurrence: None)
  Receive Date: 20111219
  Receipt Date: 20111205
  Transmission Date: 20120403
  Serious: Yes (Other)
  Sender: FDA-Public Use
  Company Number: FK201102907

PATIENT
  Age: 54 Year
  Sex: Male
  Weight: 75.3 kg

DRUGS (6)
  1. AVASTATIN (BEVACIZUMAB) (BEVACIZUMAB) [Suspect]
     Dosage: 900 MG, INTRAVENOUS DRIP
     Route: 041
  2. LEUCOVORIN CALCIUM [Suspect]
     Indication: COLON CANCER
     Dosage: 40 MG, INTRAVENOUS (NOT OTHERWISE SPECIFIED)
     Route: 042
  3. ELOXATIN [Suspect]
     Indication: COLON CANCER
     Dosage: 200 MG, INTRAVENOUS DRIP
     Route: 041
  4. ALOXI (PALONOSETRON HYDROCHLORIDE) (PALONOSETRON HYDROCHLORIDE) [Concomitant]
  5. DEXAMETHASONE [Concomitant]
  6. FLUOROURACIL [Suspect]
     Indication: COLON CANCER
     Dosage: 800 MG, INTRAVENOUS DRIP
     Route: 041

REACTIONS (1)
  - BLINDNESS TRANSIENT [None]
